FAERS Safety Report 7097989-1 (Version None)
Quarter: 2010Q4

REPORT INFORMATION
  Report Type: 
  Country: None (occurrence: None)
  Receive Date: 20101112
  Receipt Date: 20101018
  Transmission Date: 20110411
  Serious: No
  Sender: FDA-Public Use
  Company Number: US-BAYER-201025014NA

PATIENT
  Sex: Female

DRUGS (1)
  1. MIRENA [Suspect]
     Indication: PRODUCT USED FOR UNKNOWN INDICATION
     Route: 015
     Dates: start: 20071001

REACTIONS (6)
  - BREAST PAIN [None]
  - BREAST TENDERNESS [None]
  - DEPRESSED MOOD [None]
  - NAUSEA [None]
  - VOMITING [None]
  - WEIGHT INCREASED [None]
